FAERS Safety Report 15605799 (Version 1)
Quarter: 2018Q4

REPORT INFORMATION
  Report Type: Spontaneous
  Country: ES (occurrence: US)
  Receive Date: 20181112
  Receipt Date: 20181112
  Transmission Date: 20190205
  Serious: Yes (Other)
  Sender: FDA-Public Use
  Company Number: ES-SUN PHARMACEUTICAL INDUSTRIES LTD-2018RR-190567

PATIENT
  Sex: Female

DRUGS (16)
  1. DEXAMETHASONE. [Suspect]
     Active Substance: DEXAMETHASONE
     Dosage: ()
  2. SIMVASTATIN. [Suspect]
     Active Substance: SIMVASTATIN
     Dosage: ()
  3. FLUTICASONE. [Suspect]
     Active Substance: FLUTICASONE
     Dosage: ()
  4. TOLTERODINE [Suspect]
     Active Substance: TOLTERODINE
     Indication: PRODUCT USED FOR UNKNOWN INDICATION
     Dosage: ()
     Route: 065
  5. CITALOPRAM [Suspect]
     Active Substance: CITALOPRAM HYDROBROMIDE
     Dosage: ()
  6. IRINOTECAN [Suspect]
     Active Substance: IRINOTECAN
     Dosage: ()
  7. HYDROCODONE BITARTRATE AND ACETAMINOPHEN [Suspect]
     Active Substance: ACETAMINOPHEN\HYDROCODONE BITARTRATE
     Dosage: ()
  8. FEXOFENADINE [Suspect]
     Active Substance: FEXOFENADINE\FEXOFENADINE HYDROCHLORIDE
     Dosage: ()
  9. TRAZODONE [Suspect]
     Active Substance: TRAZODONE HYDROCHLORIDE
     Dosage: ()
  10. BUPROPION. [Suspect]
     Active Substance: BUPROPION
     Dosage: ()
  11. METHYLPHENOBARBITAL/PHENYTOIN [Suspect]
     Active Substance: MEPHOBARBITAL\PHENYTOIN
     Indication: PRODUCT USED FOR UNKNOWN INDICATION
     Dosage: ()
  12. OMEPRAZOLE. [Suspect]
     Active Substance: OMEPRAZOLE
     Dosage: ()
     Route: 048
  13. PINDOLOL. [Suspect]
     Active Substance: PINDOLOL
     Dosage: ()
  14. TEMOZOLOMIDE. [Suspect]
     Active Substance: TEMOZOLOMIDE
     Dosage: ()
  15. LEVOTHYROXINE. [Suspect]
     Active Substance: LEVOTHYROXINE
     Dosage: ()
  16. BEVACIZUMAB. [Suspect]
     Active Substance: BEVACIZUMAB
     Dosage: ()

REACTIONS (6)
  - Neutrophil count [Unknown]
  - Oesophagitis [Unknown]
  - Urinary tract infection [Unknown]
  - Haemoglobin [Unknown]
  - Sepsis [Unknown]
  - White blood cell count abnormal [Unknown]
